FAERS Safety Report 5586486-8 (Version None)
Quarter: 2007Q4

REPORT INFORMATION
  Report Type: 
  Country: None (occurrence: None)
  Receive Date: 20071205
  Receipt Date: 20070807
  Transmission Date: 20080405
  Serious: Yes (Other)
  Sender: FDA-Public Use
  Company Number: HQWYE463708AUG07

PATIENT
  Age: 60 Year
  Sex: Female
  Weight: 72.64 kg

DRUGS (9)
  1. EFFEXOR XR [Suspect]
     Indication: ANGER
     Dosage: SEE IMAGE
     Route: 048
     Dates: start: 20040101, end: 20070201
  2. EFFEXOR XR [Suspect]
     Indication: DEPRESSION
     Dosage: SEE IMAGE
     Route: 048
     Dates: start: 20040101, end: 20070201
  3. EFFEXOR XR [Suspect]
     Indication: ANGER
     Dosage: SEE IMAGE
     Route: 048
     Dates: start: 20070201, end: 20070501
  4. EFFEXOR XR [Suspect]
     Indication: DEPRESSION
     Dosage: SEE IMAGE
     Route: 048
     Dates: start: 20070201, end: 20070501
  5. EFFEXOR XR [Suspect]
     Indication: ANGER
     Dosage: SEE IMAGE
     Route: 048
     Dates: start: 20070501, end: 20070601
  6. EFFEXOR XR [Suspect]
     Indication: DEPRESSION
     Dosage: SEE IMAGE
     Route: 048
     Dates: start: 20070501, end: 20070601
  7. EFFEXOR XR [Suspect]
     Indication: ANGER
     Dosage: SEE IMAGE
     Route: 048
     Dates: start: 20070601
  8. EFFEXOR XR [Suspect]
     Indication: DEPRESSION
     Dosage: SEE IMAGE
     Route: 048
     Dates: start: 20070601
  9. WELLBUTRIN [Concomitant]

REACTIONS (5)
  - DRUG WITHDRAWAL SYNDROME [None]
  - MALAISE [None]
  - NAUSEA [None]
  - SALIVARY HYPERSECRETION [None]
  - VOMITING [None]
